FAERS Safety Report 10902244 (Version 2)
Quarter: 2015Q2

REPORT INFORMATION
  Report Type: Report from Study
  Country: SI (occurrence: SI)
  Receive Date: 20150310
  Receipt Date: 20150427
  Transmission Date: 20150821
  Serious: Yes (Other)
  Sender: FDA-Public Use
  Company Number: SI-BAYER-2015-035268

PATIENT
  Age: 42 Year
  Sex: Female

DRUGS (1)
  1. BETAFERON [Suspect]
     Active Substance: INTERFERON BETA-1B
     Indication: RELAPSING-REMITTING MULTIPLE SCLEROSIS
     Dosage: 1 DF, QOD
     Route: 058
     Dates: start: 2007, end: 201412

REACTIONS (10)
  - Rash generalised [None]
  - Herpes zoster [None]
  - Multiple sclerosis [None]
  - Dermatitis allergic [None]
  - Herpes zoster [None]
  - Dermatitis allergic [None]
  - Urinary incontinence [None]
  - Lip swelling [None]
  - Alopecia [None]
  - Influenza like illness [None]

NARRATIVE: CASE EVENT DATE: 2011
